FAERS Safety Report 22991483 (Version 4)
Quarter: 2025Q2

REPORT INFORMATION
  Report Type: Report from Study
  Country: US (occurrence: US)
  Receive Date: 20230927
  Receipt Date: 20250410
  Transmission Date: 20250716
  Serious: Yes (Hospitalization, Other)
  Sender: EMD SERONO INC
  Company Number: US-Merck Healthcare KGaA-2023476334

PATIENT
  Age: 47 Year
  Sex: Male

DRUGS (1)
  1. REBIF [Suspect]
     Active Substance: INTERFERON BETA-1A
     Indication: Multiple sclerosis
     Dates: start: 20061015, end: 20140301

REACTIONS (14)
  - Type 2 diabetes mellitus [Unknown]
  - Intervertebral disc protrusion [Unknown]
  - Neuropathy peripheral [Not Recovered/Not Resolved]
  - Intervertebral disc injury [Unknown]
  - Road traffic accident [Unknown]
  - White blood cell count increased [Unknown]
  - Mobility decreased [Unknown]
  - Peroneal nerve palsy [Unknown]
  - Muscular weakness [Unknown]
  - Neuralgia [Not Recovered/Not Resolved]
  - Weight increased [Unknown]
  - Balance disorder [Unknown]
  - Pain in extremity [Not Recovered/Not Resolved]
  - Product administration interrupted [Unknown]

NARRATIVE: CASE EVENT DATE: 20070101
